FAERS Safety Report 10994792 (Version 1)
Quarter: 2015Q2

REPORT INFORMATION
  Report Type: Report from Study
  Country: US (occurrence: US)
  Receive Date: 20150407
  Receipt Date: 20150407
  Transmission Date: 20150821
  Serious: Yes (Other)
  Sender: FDA-Public Use
  Company Number: US-GILEAD-2015-0140043

PATIENT
  Age: 67 Year
  Sex: Female
  Weight: 83.9 kg

DRUGS (22)
  1. RIBAVIRIN. [Suspect]
     Active Substance: RIBAVIRIN
     Dosage: 600 MG, QD
     Route: 048
     Dates: end: 20150312
  2. DDAVP                              /00361901/ [Concomitant]
     Dosage: 0.01 %, QHS
     Route: 045
  3. TYLENOL [Concomitant]
     Active Substance: ACETAMINOPHEN
     Dosage: 325 MG, QID
     Route: 048
  4. VITAMIN B12 [Concomitant]
     Active Substance: CYANOCOBALAMIN
     Dosage: 1000 ?G, QD
     Route: 048
  5. NEO-SYNEPHRINE                     /00070002/ [Concomitant]
     Dosage: 0.25 %, PRN
     Route: 045
  6. PANTOPRAZOLE SODIUM [Concomitant]
     Dosage: 40 MG, Q4DAYS
     Route: 048
  7. SOFOSBUVIR [Suspect]
     Active Substance: SOFOSBUVIR
     Dosage: 400 MG, UNK
     Route: 048
     Dates: end: 20150312
  8. IRON [Concomitant]
     Active Substance: IRON
     Dosage: 3 DF, QD
     Route: 048
  9. HYDROCORTISONE. [Concomitant]
     Active Substance: HYDROCORTISONE
     Dosage: 2.5 %, BID
     Route: 061
  10. PROBIOTIC                          /06395501/ [Concomitant]
     Dosage: 1 DF, BID
     Route: 048
  11. CLINDAMYCIN [Concomitant]
     Active Substance: CLINDAMYCIN\CLINDAMYCIN PHOSPHATE
     Dosage: UNK, PRN
  12. LEVAQUIN [Concomitant]
     Active Substance: LEVOFLOXACIN
     Dosage: 100 ML, PRN
  13. METFORMIN HCL [Concomitant]
     Active Substance: METFORMIN HYDROCHLORIDE
     Dosage: 1000 MG, BID
     Route: 048
  14. SOFOSBUVIR [Suspect]
     Active Substance: SOFOSBUVIR
     Indication: CHRONIC HEPATITIS C
     Dosage: 400 MG, BID
     Route: 048
  15. RIBAVIRIN. [Suspect]
     Active Substance: RIBAVIRIN
     Indication: CHRONIC HEPATITIS C
     Dosage: 600 MG, BID
     Route: 048
  16. PROGESTERONE. [Concomitant]
     Active Substance: PROGESTERONE
     Dosage: UNK, QD
  17. ZETIA [Concomitant]
     Active Substance: EZETIMIBE
     Dosage: 10 MG, QD
     Route: 048
  18. B COMPLEX                          /00322001/ [Concomitant]
     Dosage: 1 DF, UNK
     Route: 048
  19. ROBITUSSIN COLD COLD + CONGESTION [Concomitant]
     Dosage: UNK, PRN
  20. TYLENOL ARTHRITIS PAIN [Concomitant]
     Active Substance: ACETAMINOPHEN
     Dosage: 650 MG, PRN
     Route: 048
  21. VITAMIN B12 [Concomitant]
     Active Substance: CYANOCOBALAMIN
     Dosage: 500 ?G, QD
     Route: 048
  22. STIMATE                            /00361902/ [Concomitant]
     Dosage: 1.5 DF, PRN

REACTIONS (27)
  - Headache [Unknown]
  - Drug eruption [Unknown]
  - Overdose [Recovered/Resolved]
  - Chills [Unknown]
  - Diarrhoea [Unknown]
  - Haemolytic anaemia [Unknown]
  - Erythema [Unknown]
  - Excoriation [Unknown]
  - Dizziness exertional [Unknown]
  - Rash pruritic [Unknown]
  - Decreased appetite [Unknown]
  - Temperature intolerance [Unknown]
  - Dyspepsia [Unknown]
  - Irritability [Unknown]
  - Vision blurred [Unknown]
  - Salivary hypersecretion [Unknown]
  - Chest pain [Unknown]
  - Flank pain [Unknown]
  - Dyspnoea exertional [Unknown]
  - Depression [Unknown]
  - Haemorrhoidal haemorrhage [Unknown]
  - Anxiety [Unknown]
  - Middle insomnia [Unknown]
  - Fatigue [Unknown]
  - Idiosyncratic drug reaction [Recovered/Resolved]
  - Mood swings [Unknown]
  - Abdominal pain [Unknown]
